FAERS Safety Report 18407169 (Version 3)
Quarter: 2023Q2

REPORT INFORMATION
  Report Type: Spontaneous
  Country: US (occurrence: US)
  Receive Date: 20201020
  Receipt Date: 20230406
  Transmission Date: 20230722
  Serious: Yes (Hospitalization, Disabling, Other)
  Sender: FDA-Public Use
  Company Number: US-PURDUE-USA-2020-0171816

PATIENT
  Sex: Female

DRUGS (4)
  1. HYDROCODONE BITARTRATE [Suspect]
     Active Substance: HYDROCODONE BITARTRATE
     Indication: Pain
     Dosage: UNKNOWN
     Route: 048
     Dates: start: 2010
  2. HYDROCODONE BITARTRATE AND ACETAMINOPHEN [Suspect]
     Active Substance: ACETAMINOPHEN\HYDROCODONE BITARTRATE
     Indication: Product used for unknown indication
     Dosage: UNKNOWN
     Route: 048
  3. TRAMADOL [Suspect]
     Active Substance: TRAMADOL
     Indication: Product used for unknown indication
     Dosage: UNKNOWN
     Route: 048
  4. HEROIN [Suspect]
     Active Substance: DIAMORPHINE
     Indication: Product used for unknown indication
     Dosage: UNKNOWN
     Route: 065

REACTIONS (16)
  - Endocarditis [Unknown]
  - Volvulus repair [Unknown]
  - Cardiac disorder [Unknown]
  - Accidental overdose [Unknown]
  - Drug dependence [Unknown]
  - Drug abuse [Unknown]
  - Motor dysfunction [Unknown]
  - General physical health deterioration [Unknown]
  - Mental disorder [Unknown]
  - Hunger [Unknown]
  - Personality disorder [Unknown]
  - Tooth extraction [Unknown]
  - Pulpitis dental [Unknown]
  - Cyst [Unknown]
  - Emotional distress [Unknown]
  - Unevaluable event [Unknown]
